APPROVED DRUG PRODUCT: NIKITA
Active Ingredient: PITAVASTATIN SODIUM
Strength: EQ 2MG BASE
Dosage Form/Route: TABLET;ORAL
Application: N209875 | Product #002
Applicant: LUPIN LTD
Approved: Aug 4, 2017 | RLD: Yes | RS: No | Type: DISCN